FAERS Safety Report 9479559 (Version 1)
Quarter: 2013Q3

REPORT INFORMATION
  Report Type: Spontaneous
  Country: DE (occurrence: DE)
  Receive Date: 20130827
  Receipt Date: 20130827
  Transmission Date: 20140515
  Serious: Yes (Other)
  Sender: FDA-Public Use
  Company Number: DE-UCBSA-095906

PATIENT
  Age: 74 Year
  Sex: Male

DRUGS (3)
  1. LEVETIRACETAM UCB [Suspect]
     Dosage: DOSE SCHEDULED: 1000-0-750
     Dates: start: 2010
  2. SIMVASTATIN [Concomitant]
  3. PANTOPRAZOLE [Concomitant]
     Dosage: OCCASIONALLY

REACTIONS (3)
  - Thrombocytopenia [Unknown]
  - White blood cell count decreased [Unknown]
  - Red blood cell count decreased [Unknown]
